FAERS Safety Report 19818444 (Version 1)
Quarter: 2021Q3

REPORT INFORMATION
  Report Type: Other
  Country: IN (occurrence: IN)
  Receive Date: 20210911
  Receipt Date: 20210911
  Transmission Date: 20211014
  Serious: Yes (Hospitalization)
  Sender: FDA-Public Use
  Company Number: IN-B.BRAUN MEDICAL INC.-2118279

PATIENT
  Age: 32 Year
  Sex: Female
  Weight: 60 kg

DRUGS (4)
  1. FENTANYL. [Concomitant]
     Active Substance: FENTANYL
  2. SODIUM CHLORIDE INJECTIONS USP 0264?7800?00 0264?7800?10 [Suspect]
     Active Substance: SODIUM CHLORIDE
     Indication: HAEMODYNAMIC INSTABILITY
     Route: 042
  3. VECURONIUM [Concomitant]
     Active Substance: VECURONIUM BROMIDE
  4. THIOPENTONE [Concomitant]
     Active Substance: THIOPENTAL SODIUM

REACTIONS (1)
  - Haemothorax [None]
